FAERS Safety Report 8573795-3 (Version None)
Quarter: 2012Q3

REPORT INFORMATION
  Report Type: 
  Country: None (occurrence: None)
  Receive Date: 20120806
  Receipt Date: 20120726
  Transmission Date: 20120928
  Serious: Yes (Life-Threatening, Hospitalization)
  Sender: FDA-Public Use
  Company Number: DE-TEVA-350507GER

PATIENT
  Age: 59 Year
  Sex: Female
  Weight: 57 kg

DRUGS (6)
  1. CLEMASTINE FUMARATE [Concomitant]
  2. RANITIDINE HCL [Concomitant]
  3. GRANISETRON [Concomitant]
     Indication: OVARIAN CANCER
     Route: 042
     Dates: start: 20120620
  4. CARBOPLATIN [Suspect]
     Indication: OVARIAN CANCER
     Route: 042
     Dates: start: 20120620
  5. PACLITAXEL-ACTAVIS [Concomitant]
     Indication: OVARIAN CANCER
     Route: 042
     Dates: start: 20120620
  6. DEXAMETHASONE [Concomitant]

REACTIONS (3)
  - URINARY INCONTINENCE [None]
  - CARDIOVASCULAR DISORDER [None]
  - SYNCOPE [None]
